FAERS Safety Report 12481607 (Version 1)
Quarter: 2016Q2

REPORT INFORMATION
  Report Type: Report from Study
  Country: US (occurrence: US)
  Receive Date: 20160620
  Receipt Date: 20160620
  Transmission Date: 20160815
  Serious: Yes (Death)
  Sender: FDA-Public Use
  Company Number: US-PFIZER INC-2016302881

PATIENT

DRUGS (5)
  1. MELPHALAN [Suspect]
     Active Substance: MELPHALAN
     Indication: LYMPHOMA
     Dosage: 60 MG/M2 X 2
  2. BUSULFAN. [Suspect]
     Active Substance: BUSULFAN
     Indication: LYMPHOMA
     Dosage: AT AN AREA UNDER THE RECEIVER OPERATING CHARACTERISTIC CURVE OF 4000 DAILY X 4
  3. GEMCITABINE HYDROCHLORIDE. [Suspect]
     Active Substance: GEMCITABINE HYDROCHLORIDE
     Indication: LYMPHOMA
     Dosage: 2775 MG/M2, OVER 4.5 X 2
  4. VORINOSTAT [Suspect]
     Active Substance: VORINOSTAT
     Indication: LYMPHOMA
     Dosage: 1000 MG, 1X/DAY (ON DAYS -11 THROUGH -3)
     Route: 048
  5. AZACITIDINE. [Suspect]
     Active Substance: AZACITIDINE
     Indication: LYMPHOMA
     Dosage: 15 TO 35 MG/M2 DAILY, ON DAYS -11 THROUGH -3
     Route: 042

REACTIONS (1)
  - Sepsis [Fatal]
